FAERS Safety Report 5952977-0 (Version None)
Quarter: 2008Q4

REPORT INFORMATION
  Report Type: 
  Country: None (occurrence: None)
  Receive Date: 20081114
  Receipt Date: 20081113
  Transmission Date: 20090506
  Serious: Yes (Other)
  Sender: FDA-Public Use
  Company Number: TR-BRISTOL-MYERS SQUIBB COMPANY-14406102

PATIENT
  Sex: Female

DRUGS (1)
  1. KARVEZIDE FILM-COATED TABS 300/12.5 MG [Suspect]
     Indication: HYPERTENSION
     Route: 048

REACTIONS (1)
  - GASTRIC HAEMORRHAGE [None]
